FAERS Safety Report 5447938-4 (Version None)
Quarter: 2007Q3

REPORT INFORMATION
  Report Type: 
  Country: None (occurrence: None)
  Receive Date: 20070910
  Receipt Date: 20070905
  Transmission Date: 20080115
  Serious: Yes (Hospitalization)
  Sender: FDA-Public Use
  Company Number: JP-ROXANE LABORATORIES, INC-2007-BP-20563NB

PATIENT
  Age: 69 Year
  Sex: Female

DRUGS (2)
  1. MUCOSAL-L [Suspect]
     Route: 048
  2. THEOPHYLLINE [Suspect]
     Route: 048

REACTIONS (1)
  - COLITIS COLLAGENOUS [None]
